FAERS Safety Report 4876049-1 (Version None)
Quarter: 2005Q4

REPORT INFORMATION
  Report Type: 
  Country: None (occurrence: None)
  Receive Date: 20051206
  Receipt Date: 20051028
  Transmission Date: 20060501
  Serious: No
  Sender: FDA-Public Use
  Company Number: USA0510112182

PATIENT
  Sex: Female

DRUGS (2)
  1. CYMBALTA [Suspect]
  2. EFFEXOR (VENALAXINE HYDROCHLORIDE) [Concomitant]

REACTIONS (5)
  - ANORGASMIA [None]
  - ANXIETY [None]
  - DRUG WITHDRAWAL SYNDROME [None]
  - LIBIDO DECREASED [None]
  - SEXUAL DYSFUNCTION [None]
